FAERS Safety Report 12569805 (Version 1)
Quarter: 2016Q3

REPORT INFORMATION
  Report Type: Spontaneous
  Country: US (occurrence: None)
  Receive Date: 20160718
  Receipt Date: 20160718
  Transmission Date: 20161109
  Serious: No
  Sender: FDA-Public Use
  Company Number: None

PATIENT
  Age: 52 Year
  Sex: Female
  Weight: 45.36 kg

DRUGS (5)
  1. HYDROCODONE-ACETAMINOPHEN, 10 MG [Suspect]
     Active Substance: ACETAMINOPHEN\HYDROCODONE BITARTRATE
     Indication: PAIN
     Route: 048
     Dates: start: 20160613, end: 20160614
  2. KLONOPIN [Concomitant]
     Active Substance: CLONAZEPAM
  3. VITAMIN C [Concomitant]
     Active Substance: ASCORBIC ACID
  4. ATIVAN [Concomitant]
     Active Substance: LORAZEPAM
  5. AMBIEN [Concomitant]
     Active Substance: ZOLPIDEM TARTRATE

REACTIONS (6)
  - Product odour abnormal [None]
  - Product physical issue [None]
  - Palpitations [None]
  - Psychotic disorder [None]
  - No reaction on previous exposure to drug [None]
  - Feeling abnormal [None]

NARRATIVE: CASE EVENT DATE: 20160613
